FAERS Safety Report 5368793-7 (Version None)
Quarter: 2007Q2

REPORT INFORMATION
  Report Type: 
  Country: None (occurrence: None)
  Receive Date: 20070622
  Receipt Date: 20070622
  Transmission Date: 20071010
  Serious: Yes (Other)
  Sender: FDA-Public Use
  Company Number: None

PATIENT
  Age: 1 Month
  Sex: Female
  Weight: 2 kg

DRUGS (1)
  1. COSYNTROPIN [Suspect]
     Indication: ACTH STIMULATION TEST
     Dosage: 7 MCG X 1 IV BOLUS
     Route: 040
     Dates: start: 20061228, end: 20061228

REACTIONS (3)
  - OXYGEN SATURATION DECREASED [None]
  - PALLOR [None]
  - RESPIRATORY RATE DECREASED [None]
